FAERS Safety Report 8060276-9 (Version None)
Quarter: 2012Q1

REPORT INFORMATION
  Report Type: 
  Country: None (occurrence: None)
  Receive Date: 20120119
  Receipt Date: 20120119
  Transmission Date: 20120608
  Serious: Yes (Hospitalization)
  Sender: FDA-Public Use
  Company Number: None

PATIENT
  Age: 78 Year
  Sex: Female
  Weight: 78 kg

DRUGS (18)
  1. PRADAXA [Suspect]
     Indication: ATRIAL FIBRILLATION
     Dosage: PO   RECENT
     Route: 048
  2. DIOVAN [Concomitant]
  3. CLONIDINE [Concomitant]
  4. HYDRALAZINE HCL [Concomitant]
  5. FELODIPINE [Concomitant]
  6. NITROGLYCERIN [Concomitant]
  7. LORAZEPAM [Concomitant]
  8. ESOMEPRAZOLE MAGNESIUM [Concomitant]
  9. DIGOXIN [Concomitant]
  10. ALAMAST [Concomitant]
  11. DUONEB [Concomitant]
  12. MUCINEX [Concomitant]
  13. COMBIVENT [Concomitant]
  14. LASIX [Concomitant]
  15. ZOCOR [Concomitant]
  16. COMBIVENT [Concomitant]
  17. GLIMEPIRIDE [Concomitant]
  18. SYNTHROID [Concomitant]

REACTIONS (2)
  - ANAEMIA [None]
  - HAEMORRHAGE [None]
